FAERS Safety Report 11544606 (Version 1)
Quarter: 2015Q3

REPORT INFORMATION
  Report Type: Spontaneous
  Country: GB (occurrence: GB)
  Receive Date: 20150924
  Receipt Date: 20150924
  Transmission Date: 20151125
  Serious: Yes (Life-Threatening, Hospitalization)
  Sender: FDA-Public Use
  Company Number: PHFR2015GB003222

PATIENT
  Age: 53 Year
  Sex: Male

DRUGS (7)
  1. CLOPIXOL [Concomitant]
     Active Substance: ZUCLOPENTHIXOL ACETATE
     Indication: SCHIZOPHRENIA
     Dosage: 25 MG, BID
     Route: 048
     Dates: start: 201506
  2. CLOZARIL [Suspect]
     Active Substance: CLOZAPINE
     Dosage: UNK
     Route: 048
     Dates: start: 20130808
  3. CLOZARIL [Suspect]
     Active Substance: CLOZAPINE
     Indication: SCHIZOPHRENIA
     Dosage: UNK
     Route: 048
     Dates: start: 20040203
  4. ZECOVIR [Concomitant]
     Active Substance: BRIVUDINE
     Indication: PRODUCT USED FOR UNKNOWN INDICATION
     Route: 065
  5. CLOZARIL [Suspect]
     Active Substance: CLOZAPINE
     Dosage: 400 MG, QD
     Route: 048
     Dates: start: 201507, end: 20150825
  6. HYOSCINE HYDROBROMIDE [Concomitant]
     Active Substance: SCOPOLAMINE
     Indication: SALIVARY HYPERSECRETION
     Dosage: 600 MG, QD
     Route: 048
     Dates: start: 201507
  7. SODIUM VALPROATE [Concomitant]
     Active Substance: VALPROATE SODIUM
     Indication: PRODUCT USED FOR UNKNOWN INDICATION
     Dosage: UNK
     Route: 065

REACTIONS (5)
  - Dysphagia [Unknown]
  - Asthenia [Unknown]
  - Agranulocytosis [Recovered/Resolved]
  - Gastrointestinal infection [Unknown]
  - Respiratory tract infection [Unknown]

NARRATIVE: CASE EVENT DATE: 20150824
